FAERS Safety Report 7003459-9 (Version None)
Quarter: 2010Q3

REPORT INFORMATION
  Report Type: 
  Country: None (occurrence: None)
  Receive Date: 20100916
  Receipt Date: 20100831
  Transmission Date: 20110219
  Serious: Yes (Other)
  Sender: FDA-Public Use
  Company Number: 201008AGG00951

PATIENT

DRUGS (4)
  1. TIROFIBAN (TIROFIBAN) [Suspect]
     Dosage: (LOADING DOSE: 25 UG/KG IN 3 MIN, 0.15 UG/KG PER MIN FOR 18-24 H INTRAVENOUS))
     Route: 042
  2. CLOPIDOGREL [Concomitant]
  3. ASPIRIN [Concomitant]
  4. HEPARIN [Concomitant]

REACTIONS (1)
  - THROMBOSIS IN DEVICE [None]
